FAERS Safety Report 11680165 (Version 2)
Quarter: 2015Q4

REPORT INFORMATION
  Report Type: Spontaneous
  Country: US (occurrence: US)
  Receive Date: 20151027
  Receipt Date: 20151104
  Transmission Date: 20160304
  Serious: No
  Sender: FDA-Public Use
  Company Number: US-ELI_LILLY_AND_COMPANY-US201005001687

PATIENT
  Age: 50 Year
  Sex: Female
  Weight: 53.06 kg

DRUGS (10)
  1. LOPERAMIDE [Concomitant]
     Active Substance: LOPERAMIDE
     Dosage: 2 MG, AS NEEDED
     Route: 048
  2. TRICOR [Concomitant]
     Active Substance: FENOFIBRATE
     Dosage: 145 MG, DAILY (1/D)
     Route: 048
  3. NAPROXEN. [Concomitant]
     Active Substance: NAPROXEN
     Dosage: 50 MG, DAILY (1/D)
     Route: 048
  4. FORTEO [Suspect]
     Active Substance: TERIPARATIDE
     Indication: OSTEOPOROSIS
     Dosage: 20 UG, DAILY (1/D)
     Route: 065
     Dates: start: 201004
  5. NORVIR [Concomitant]
     Active Substance: RITONAVIR
     Dosage: 100 MG, 2/D
     Route: 048
  6. FORTEO [Suspect]
     Active Substance: TERIPARATIDE
     Dosage: 20 UG, DAILY (1/D)
     Route: 065
  7. LORATADINE. [Concomitant]
     Active Substance: LORATADINE
     Dosage: 10 MG, DAILY (1/D)
     Route: 048
  8. FORTEO [Suspect]
     Active Substance: TERIPARATIDE
     Dosage: 20 UG, DAILY (1/D)
     Route: 065
  9. PREZISTA [Concomitant]
     Active Substance: DARUNAVIR ETHANOLATE
     Dosage: 600 MG, 2/D
     Route: 048
  10. VITAMIN D [Concomitant]
     Active Substance: CHOLECALCIFEROL
     Dosage: 1000 IU, EACH MORNING
     Route: 048

REACTIONS (14)
  - Hypoaesthesia [Unknown]
  - Back pain [Unknown]
  - Fall [Unknown]
  - Nausea [Unknown]
  - Dizziness postural [Recovered/Resolved]
  - Injection site bruising [Recovered/Resolved]
  - Injection site injury [Unknown]
  - Tooth extraction [Recovered/Resolved]
  - Pain in extremity [Unknown]
  - Hand fracture [Unknown]
  - Fat tissue increased [Unknown]
  - Alopecia [Not Recovered/Not Resolved]
  - Rhinorrhoea [Unknown]
  - Blood calcium increased [Recovered/Resolved]

NARRATIVE: CASE EVENT DATE: 201004
